FAERS Safety Report 17530879 (Version 1)
Quarter: 2020Q1

REPORT INFORMATION
  Report Type: Spontaneous
  Country: CA (occurrence: CA)
  Receive Date: 20200311
  Receipt Date: 20200311
  Transmission Date: 20200409
  Serious: Yes (Hospitalization)
  Sender: FDA-Public Use
  Company Number: NVSC2020CA067590

PATIENT
  Age: 85 Year
  Sex: Female

DRUGS (7)
  1. IRBESARTAN. [Suspect]
     Active Substance: IRBESARTAN
     Indication: PRODUCT USED FOR UNKNOWN INDICATION
     Dosage: UNK
     Route: 065
  2. SANDOSTATIN [Suspect]
     Active Substance: OCTREOTIDE ACETATE
     Indication: CARCINOID TUMOUR
     Dosage: 100 MG
     Route: 058
  3. ELIQUIS [Concomitant]
     Active Substance: APIXABAN
     Indication: PRODUCT USED FOR UNKNOWN INDICATION
     Dosage: UNK
     Route: 065
  4. SANDOSTATIN LAR DEPOT [Suspect]
     Active Substance: OCTREOTIDE ACETATE
     Dosage: 20 MG, Q3W (1 EVERY 3 WEEKS)
     Route: 065
  5. SANDOSTATIN LAR DEPOT [Suspect]
     Active Substance: OCTREOTIDE ACETATE
     Indication: CARCINOID TUMOUR
     Dosage: 30 MG
     Route: 030
  6. BISOPROLOL [Suspect]
     Active Substance: BISOPROLOL
     Indication: CARDIAC DISORDER
     Dosage: UNK
     Route: 065
  7. HYDROCHLOROTHIAZIDE. [Suspect]
     Active Substance: HYDROCHLOROTHIAZIDE
     Indication: CARDIAC DISORDER
     Dosage: UNK
     Route: 065

REACTIONS (13)
  - Blood pressure increased [Unknown]
  - Blood magnesium decreased [Unknown]
  - Heart rate irregular [Unknown]
  - Injection site pain [Unknown]
  - Confusional state [Unknown]
  - Anxiety [Unknown]
  - Fatigue [Unknown]
  - Blood pressure systolic increased [Unknown]
  - Peritoneal disorder [Unknown]
  - Fall [Unknown]
  - Inappropriate schedule of product administration [Unknown]
  - Blood potassium decreased [Unknown]
  - Malaise [Unknown]
